FAERS Safety Report 13236551 (Version 3)
Quarter: 2017Q2

REPORT INFORMATION
  Report Type: Report from Study
  Country: SE (occurrence: SE)
  Receive Date: 20170215
  Receipt Date: 20170413
  Transmission Date: 20170830
  Serious: Yes (Other)
  Sender: FDA-Public Use
  Company Number: SE-INCYTE CORPORATION-2017IN000892

PATIENT
  Age: 71 Year
  Sex: Male

DRUGS (3)
  1. JAKAVI [Suspect]
     Active Substance: RUXOLITINIB
     Indication: MYELOFIBROSIS
     Dosage: 30 MG, UNK
     Route: 048
     Dates: start: 20161013
  2. JAKAVI [Suspect]
     Active Substance: RUXOLITINIB
     Dosage: 15 MG, BID
     Route: 048
     Dates: start: 20161013, end: 20170113
  3. JAKAVI [Suspect]
     Active Substance: RUXOLITINIB
     Dosage: 10 MG, BID
     Route: 048
     Dates: start: 20170126

REACTIONS (11)
  - Dizziness [Recovered/Resolved]
  - Pyruvate kinase increased [Unknown]
  - Fatigue [Recovered/Resolved]
  - Arrhythmia [Unknown]
  - Haemoglobin decreased [Unknown]
  - Pancytopenia [Recovering/Resolving]
  - Ventricular extrasystoles [Unknown]
  - Alanine aminotransferase increased [Unknown]
  - Sinus node dysfunction [Recovered/Resolved]
  - Heart rate increased [Unknown]
  - Anaemia [Unknown]

NARRATIVE: CASE EVENT DATE: 20161013
